FAERS Safety Report 17848678 (Version 2)
Quarter: 2020Q2

REPORT INFORMATION
  Report Type: Spontaneous
  Country: BR (occurrence: BR)
  Receive Date: 20200602
  Receipt Date: 20200603
  Transmission Date: 20200714
  Serious: Yes (Life-Threatening, Hospitalization, Other)
  Sender: FDA-Public Use
  Company Number: NVSC2020BR145935

PATIENT
  Age: 58 Year
  Sex: Female

DRUGS (6)
  1. DIOVAN AMLO FIX [Suspect]
     Active Substance: AMLODIPINE\VALSARTAN
     Dosage: 160/5 MG
     Route: 065
     Dates: start: 20200510
  2. PURAN [Concomitant]
     Active Substance: LEVOTHYROXINE SODIUM
     Indication: THYROID DISORDER
     Route: 065
  3. DIOVAN AMLO FIX [Suspect]
     Active Substance: AMLODIPINE\VALSARTAN
     Indication: BLOOD PRESSURE INCREASED
     Dosage: 160/10 MG
     Route: 065
  4. RIVOTRIL [Concomitant]
     Active Substance: CLONAZEPAM
     Indication: PRODUCT USED FOR UNKNOWN INDICATION
     Route: 065
  5. CAPTOPRIL. [Suspect]
     Active Substance: CAPTOPRIL
     Indication: PRODUCT USED FOR UNKNOWN INDICATION
     Route: 065
  6. LOSARTAN. [Concomitant]
     Active Substance: LOSARTAN
     Indication: HYPERTENSION
     Dosage: UNK
     Route: 065

REACTIONS (18)
  - Dizziness [Unknown]
  - Retention cyst [Unknown]
  - Pollakiuria [Unknown]
  - Swelling [Unknown]
  - Insomnia [Unknown]
  - Deafness [Unknown]
  - Incorrect dose administered [Unknown]
  - Discomfort [Unknown]
  - Abnormal behaviour [Unknown]
  - Sitting disability [Unknown]
  - Gait disturbance [Unknown]
  - Blood pressure decreased [Unknown]
  - Drug ineffective [Unknown]
  - Coma [Unknown]
  - Malaise [Unknown]
  - Musculoskeletal discomfort [Unknown]
  - Bradyphrenia [Unknown]
  - Movement disorder [Unknown]

NARRATIVE: CASE EVENT DATE: 20200104
